FAERS Safety Report 19392292 (Version 2)
Quarter: 2021Q2

REPORT INFORMATION
  Report Type: Spontaneous
  Country: US (occurrence: US)
  Receive Date: 20210609
  Receipt Date: 20210615
  Transmission Date: 20210717
  Serious: No
  Sender: FDA-Public Use
  Company Number: US-AMGEN-USASP2021087983

PATIENT
  Sex: Female

DRUGS (17)
  1. CALCIUM PLUS [CALCIUM] [Concomitant]
  2. RANITIDINE. [Concomitant]
     Active Substance: RANITIDINE
  3. OTEZLA [Suspect]
     Active Substance: APREMILAST
     Indication: PSORIASIS
     Dosage: 30 MILLIGRAM, BID
     Route: 048
     Dates: start: 20190524
  4. LISINOPRIL. [Concomitant]
     Active Substance: LISINOPRIL
  5. ROSUVASTATIN. [Concomitant]
     Active Substance: ROSUVASTATIN
  6. TACROLIMUS. [Concomitant]
     Active Substance: TACROLIMUS
  7. OTEZLA [Suspect]
     Active Substance: APREMILAST
     Dosage: 30 MILLIGRAM, BID
     Route: 048
  8. DULOXETINE. [Concomitant]
     Active Substance: DULOXETINE
  9. PROBIOTIC [BIFIDOBACTERIUM LACTIS] [Concomitant]
     Active Substance: BIFIDOBACTERIUM ANIMALIS LACTIS
  10. AMLODIPINE [Concomitant]
     Active Substance: AMLODIPINE BESYLATE
  11. HYOSCYAMINE. [Concomitant]
     Active Substance: HYOSCYAMINE
  12. VITAMIN B12 [Concomitant]
     Active Substance: CYANOCOBALAMIN
  13. ASPIRIN [ACETYLSALICYLIC ACID] [Concomitant]
     Active Substance: ASPIRIN
  14. FENOFIBRATE. [Concomitant]
     Active Substance: FENOFIBRATE
  15. OMEPRAZOLE. [Concomitant]
     Active Substance: OMEPRAZOLE
  16. FIBERCON [Concomitant]
     Active Substance: CALCIUM POLYCARBOPHIL
  17. VICTOZA [Concomitant]
     Active Substance: LIRAGLUTIDE

REACTIONS (1)
  - Abdominal discomfort [Recovered/Resolved]
